FAERS Safety Report 9163298 (Version 1)
Quarter: 2013Q1

REPORT INFORMATION
  Report Type: Spontaneous
  Country: MY (occurrence: MY)
  Receive Date: 20130314
  Receipt Date: 20130314
  Transmission Date: 20140127
  Serious: Yes (Death)
  Sender: FDA-Public Use
  Company Number: MY-GLAXOSMITHKLINE-B0874696A

PATIENT
  Age: 85 Year
  Sex: Male

DRUGS (5)
  1. ARIXTRA [Suspect]
     Indication: ANGINA UNSTABLE
     Dosage: 3MG PER DAY
     Route: 058
  2. ISOSORBIDE DINITRATE [Concomitant]
  3. ASPIRIN [Concomitant]
  4. LOVASTATIN [Concomitant]
  5. GLYCERYL TRINITRATE [Concomitant]

REACTIONS (3)
  - Melaena [Fatal]
  - Haematemesis [Fatal]
  - Haemoglobin decreased [Fatal]
